FAERS Safety Report 4824971-4 (Version None)
Quarter: 2005Q4

REPORT INFORMATION
  Report Type: 
  Country: None (occurrence: None)
  Receive Date: 20051110
  Receipt Date: 20051011
  Transmission Date: 20060501
  Serious: Yes (Other)
  Sender: FDA-Public Use
  Company Number: BE-MERCK-0510BEL00011

PATIENT
  Age: 32 Year
  Sex: Female

DRUGS (5)
  1. SINGULAIR [Suspect]
     Indication: ASTHMA
     Route: 048
     Dates: start: 20050301, end: 20050905
  2. BUDESONIDE AND FORMOTEROL FUMARATE [Concomitant]
     Indication: ASTHMA
     Route: 055
  3. ALBUTEROL SULFATE [Concomitant]
     Indication: ASTHMA
     Route: 055
  4. INSULIN HUMAN, ISOPHANE [Concomitant]
     Indication: DIABETES MELLITUS
     Route: 051
  5. INSULIN ASPART [Concomitant]
     Indication: DIABETES MELLITUS
     Route: 051

REACTIONS (1)
  - ALLERGIC GRANULOMATOUS ANGIITIS [None]
